FAERS Safety Report 20570415 (Version 1)
Quarter: 2022Q1

REPORT INFORMATION
  Report Type: Spontaneous
  Country: US (occurrence: US)
  Receive Date: 20220309
  Receipt Date: 20220309
  Transmission Date: 20220423
  Serious: No
  Sender: FDA-Public Use
  Company Number: US-TEVA-2022-US-2012746

PATIENT
  Age: 64 Year
  Sex: Female

DRUGS (2)
  1. CLONAZEPAM [Suspect]
     Active Substance: CLONAZEPAM
     Indication: Anxiety
     Dosage: 1 AND HALF TABLETS EVERY 8 HOURS
     Route: 065
     Dates: start: 20220221
  2. CLONAZEPAM [Suspect]
     Active Substance: CLONAZEPAM
     Indication: Panic attack

REACTIONS (2)
  - Agitation [Unknown]
  - Drug ineffective [Unknown]

NARRATIVE: CASE EVENT DATE: 20220221
